FAERS Safety Report 10856402 (Version 2)
Quarter: 2015Q1

REPORT INFORMATION
  Report Type: Spontaneous
  Country: US (occurrence: US)
  Receive Date: 20150223
  Receipt Date: 20150317
  Transmission Date: 20150721
  Serious: Yes (Hospitalization, Other)
  Sender: FDA-Public Use
  Company Number: US-GILEAD-2015-0137910

PATIENT
  Age: 46 Year
  Sex: Female
  Weight: 67 kg

DRUGS (1)
  1. HARVONI [Suspect]
     Active Substance: LEDIPASVIR\SOFOSBUVIR
     Indication: HEPATITIS C
     Dosage: 400 MG, QD
     Route: 048
     Dates: start: 20141113, end: 20150202

REACTIONS (7)
  - Seizure [Unknown]
  - Memory impairment [Unknown]
  - Transient ischaemic attack [Recovering/Resolving]
  - Syncope [Unknown]
  - Fall [Unknown]
  - Dizziness [Unknown]
  - Contusion [Unknown]

NARRATIVE: CASE EVENT DATE: 20150119
